FAERS Safety Report 5087289-3 (Version None)
Quarter: 2006Q3

REPORT INFORMATION
  Report Type: 
  Country: None (occurrence: None)
  Receive Date: 20060824
  Receipt Date: 20060719
  Transmission Date: 20061208
  Serious: Yes (Hospitalization, Other)
  Sender: FDA-Public Use
  Company Number: US-BAYER-200613050BCC

PATIENT
  Age: 76 Year
  Sex: Female
  Weight: 54 kg

DRUGS (8)
  1. ALEVE (CAPLET) [Suspect]
     Indication: HEADACHE
     Dosage: UNIT DOSE: 220 MG
     Route: 048
     Dates: start: 19980101
  2. FERRO GRADUMET [Concomitant]
  3. DIGITEK [Concomitant]
  4. KLOR-CON [Concomitant]
  5. DIOVAN [Concomitant]
  6. B 12 [Concomitant]
  7. CALCIUM GLUCONATE [Concomitant]
  8. CENTRUM SILVER [Concomitant]

REACTIONS (7)
  - BALANCE DISORDER [None]
  - FAECES DISCOLOURED [None]
  - FATIGUE [None]
  - HAEMATOCHEZIA [None]
  - HAEMOGLOBIN DECREASED [None]
  - MEDICAL DEVICE COMPLICATION [None]
  - PROCEDURAL COMPLICATION [None]
